FAERS Safety Report 7547309-0 (Version None)
Quarter: 2011Q2

REPORT INFORMATION
  Report Type: 
  Country: None (occurrence: None)
  Receive Date: 20110614
  Receipt Date: 20110602
  Transmission Date: 20111010
  Serious: Yes (Hospitalization)
  Sender: FDA-Public Use
  Company Number: GB-BRISTOL-MYERS SQUIBB COMPANY-15802424

PATIENT
  Age: 68 Year
  Sex: Male

DRUGS (5)
  1. LEVOTHYROXINE SODIUM [Concomitant]
  2. PLACEBO [Suspect]
     Indication: MALIGNANT MELANOMA
     Dates: start: 20100806
  3. OMEPRAZOLE [Concomitant]
  4. HYDROCORTISONE [Concomitant]
  5. IPILIMUMAB [Suspect]
     Indication: MALIGNANT MELANOMA
     Dates: start: 20100806

REACTIONS (3)
  - ENCEPHALITIS [None]
  - SUICIDAL IDEATION [None]
  - OBSESSIVE-COMPULSIVE DISORDER [None]
